FAERS Safety Report 4282694-7 (Version None)
Quarter: 2004Q1

REPORT INFORMATION
  Report Type: 
  Country: None (occurrence: None)
  Receive Date: 20040130
  Receipt Date: 20030303
  Transmission Date: 20041129
  Serious: Yes (Hospitalization)
  Sender: FDA-Public Use
  Company Number: US-BRISTOL-MYERS SQUIBB COMPANY-12200762

PATIENT
  Age: 32 Year
  Sex: Male
  Weight: 118 kg

DRUGS (9)
  1. SERZONE [Suspect]
     Route: 048
     Dates: start: 20030203, end: 20030214
  2. SEROQUEL [Concomitant]
     Dosage: 100MG HS,INCREASED TO 200MG HS ON 06-JAN-03 UNTIL 13-FEB-03, RESTARTED 15-FEB-03
  3. LITHOBID [Concomitant]
     Dosage: LITHOBID SR 300MG
  4. LIPITOR [Concomitant]
     Dates: start: 19970101
  5. PAXIL [Concomitant]
  6. ATENOLOL [Concomitant]
  7. ASPIRIN [Concomitant]
  8. PRILOSEC [Concomitant]
  9. ATIVAN [Concomitant]

REACTIONS (13)
  - ARTHRALGIA [None]
  - CHEST PAIN [None]
  - DEPRESSION [None]
  - DIZZINESS [None]
  - HALLUCINATION, AUDITORY [None]
  - HEADACHE [None]
  - INFLUENZA LIKE ILLNESS [None]
  - MEDICATION ERROR [None]
  - MYALGIA [None]
  - PALPITATIONS [None]
  - SUICIDAL IDEATION [None]
  - TINNITUS [None]
  - VOMITING [None]
